FAERS Safety Report 7851630-6 (Version None)
Quarter: 2011Q4

REPORT INFORMATION
  Report Type: 
  Country: None (occurrence: None)
  Receive Date: 20111026
  Receipt Date: 20111014
  Transmission Date: 20120403
  Serious: Yes (Hospitalization)
  Sender: FDA-Public Use
  Company Number: PHEH2011US06900

PATIENT
  Sex: Female

DRUGS (11)
  1. TEKTURNA [Suspect]
     Dosage: 300 MG, PER DAY
  2. FIBERCON (POLYCARBOPHIL CALCIUM) [Concomitant]
  3. ACIPHEX [Concomitant]
  4. TOPROL-XL [Concomitant]
  5. AVALIDE [Concomitant]
  6. OS-CAL [Concomitant]
  7. MAG-OX [Concomitant]
  8. ALDACTONE [Concomitant]
     Indication: DIURETIC THERAPY
     Dosage: UNK UKN, UNK
  9. LIPITOR [Concomitant]
  10. PLAVIX [Concomitant]
  11. EFFEXOR [Concomitant]

REACTIONS (2)
  - BLOOD ELECTROLYTES DECREASED [None]
  - RENAL DISORDER [None]
